FAERS Safety Report 12677773 (Version 1)
Quarter: 2016Q3

REPORT INFORMATION
  Report Type: Spontaneous
  Country: US (occurrence: US)
  Receive Date: 20160823
  Receipt Date: 20160823
  Transmission Date: 20161109
  Serious: No
  Sender: FDA-Public Use
  Company Number: US-FRI-1000086335

PATIENT
  Age: 48 Year
  Sex: Female

DRUGS (2)
  1. SAPHRIS [Suspect]
     Active Substance: ASENAPINE MALEATE
     Indication: BIPOLAR DISORDER
     Dosage: 5MG TAB IN AM DAILY, 15 MG TAB IN PM DAILY
     Dates: start: 20160621
  2. PRAZOSIN [Suspect]
     Active Substance: PRAZOSIN
     Dates: start: 201606

REACTIONS (4)
  - Skin reaction [Unknown]
  - Off label use [Not Recovered/Not Resolved]
  - Tremor [Unknown]
  - Feeling abnormal [Unknown]

NARRATIVE: CASE EVENT DATE: 20160621
